FAERS Safety Report 10238741 (Version 1)
Quarter: 2014Q2

REPORT INFORMATION
  Report Type: Report from Study
  Country: CA (occurrence: CA)
  Receive Date: 20140616
  Receipt Date: 20140616
  Transmission Date: 20141212
  Serious: Yes (Other)
  Sender: FDA-Public Use
  Company Number: CA-JNJFOC-20140606755

PATIENT
  Sex: Female
  Weight: 107.05 kg

DRUGS (2)
  1. REMICADE [Suspect]
     Indication: CROHN^S DISEASE
     Route: 042
     Dates: start: 201402
  2. REMICADE [Suspect]
     Indication: CROHN^S DISEASE
     Dosage: STARTED 6 TO 7 YEARS AGO
     Route: 042

REACTIONS (3)
  - Malaise [Unknown]
  - Unevaluable event [Unknown]
  - Weight decreased [Unknown]
